FAERS Safety Report 24120900 (Version 1)
Quarter: 2024Q3

REPORT INFORMATION
  Report Type: Spontaneous
  Country: US (occurrence: None)
  Receive Date: 20240718
  Receipt Date: 20240718
  Transmission Date: 20241016
  Serious: Yes (Disabling, Other)
  Sender: Public
  Company Number: None

PATIENT
  Age: 32 Year
  Sex: Female
  Weight: 90 kg

DRUGS (6)
  1. HERBALS\MUSHROOMS UNSPECIFIED [Suspect]
     Active Substance: HERBALS\MUSHROOMS UNSPECIFIED
     Indication: Drug therapy
  2. TOPIRAMATE [Concomitant]
     Active Substance: TOPIRAMATE
  3. Yazmin [Concomitant]
  4. emergency Albuterol inhale [Concomitant]
  5. METFORMIN [Concomitant]
     Active Substance: METFORMIN HYDROCHLORIDE
  6. PROBIOTICS NOS [Concomitant]
     Active Substance: PROBIOTICS NOS

REACTIONS (9)
  - Seizure [None]
  - Depression [None]
  - Suicidal ideation [None]
  - Feeling abnormal [None]
  - Delusion [None]
  - Abortion spontaneous [None]
  - Exposure during pregnancy [None]
  - Stress [None]
  - Recalled product administered [None]

NARRATIVE: CASE EVENT DATE: 20230320
